FAERS Safety Report 4431182-3 (Version None)
Quarter: 2004Q3

REPORT INFORMATION
  Report Type: 
  Country: None (occurrence: None)
  Receive Date: 20040824
  Receipt Date: 20040708
  Transmission Date: 20050211
  Serious: Yes (Other)
  Sender: FDA-Public Use
  Company Number: PHEH2004US07315

PATIENT
  Age: 88 Year
  Sex: Female

DRUGS (3)
  1. ZELNORM [Suspect]
     Indication: IRRITABLE BOWEL SYNDROME
     Dosage: 6 MG, BID
     Route: 048
     Dates: start: 20040608
  2. PAXIL [Concomitant]
     Dates: start: 20020101
  3. HYDROCHLOROTHIAZIDE [Concomitant]
     Dosage: UNK, UNK

REACTIONS (1)
  - MEMORY IMPAIRMENT [None]
